FAERS Safety Report 15483117 (Version 2)
Quarter: 2018Q4

REPORT INFORMATION
  Report Type: Report from Study
  Country: AU (occurrence: AU)
  Receive Date: 20181010
  Receipt Date: 20181019
  Transmission Date: 20190205
  Serious: Yes (Hospitalization)
  Sender: FDA-Public Use
  Company Number: AU-MYLANLABS-2018M1074513

PATIENT
  Age: 47 Year
  Sex: Male
  Weight: 74 kg

DRUGS (6)
  1. CLOZARIL [Suspect]
     Active Substance: CLOZAPINE
     Indication: SCHIZOPHRENIA
     Dosage: 200 MG, UNK
     Route: 048
     Dates: start: 20050118
  2. CLOZARIL [Suspect]
     Active Substance: CLOZAPINE
     Dosage: 200 MG, PM
     Dates: start: 2018
  3. CLOZARIL [Suspect]
     Active Substance: CLOZAPINE
     Dosage: 400 MG, PM
     Route: 048
  4. ARIPIPRAZOLE. [Concomitant]
     Active Substance: ARIPIPRAZOLE
     Indication: PRODUCT USED FOR UNKNOWN INDICATION
     Dosage: 400 MG, Q28D
     Dates: start: 2018
  5. DIAZEPAM. [Concomitant]
     Active Substance: DIAZEPAM
     Indication: SLEEP DISORDER
     Dosage: UNK, PM
     Dates: start: 2018
  6. OLANZAPINE. [Concomitant]
     Active Substance: OLANZAPINE
     Indication: PRODUCT USED FOR UNKNOWN INDICATION
     Dosage: 20 MG, PM
     Dates: start: 2018

REACTIONS (15)
  - Aortic dilatation [Not Recovered/Not Resolved]
  - Ejection fraction decreased [Unknown]
  - Tricuspid valve incompetence [Not Recovered/Not Resolved]
  - Left atrial dilatation [Not Recovered/Not Resolved]
  - Blood pressure increased [Unknown]
  - Troponin increased [Unknown]
  - Enuresis [Recovered/Resolved]
  - Salivary hypersecretion [Recovered/Resolved]
  - Hallucination, auditory [Unknown]
  - Chest pain [Unknown]
  - Left ventricular hypertrophy [Not Recovered/Not Resolved]
  - Aortic valve incompetence [Unknown]
  - Mitral valve thickening [Not Recovered/Not Resolved]
  - C-reactive protein increased [Unknown]
  - Mitral valve incompetence [Not Recovered/Not Resolved]

NARRATIVE: CASE EVENT DATE: 20150521
